FAERS Safety Report 12191532 (Version 1)
Quarter: 2016Q1

REPORT INFORMATION
  Report Type: Spontaneous
  Country: US (occurrence: US)
  Receive Date: 20160318
  Receipt Date: 20160318
  Transmission Date: 20160526
  Serious: Yes (Hospitalization)
  Sender: FDA-Public Use
  Company Number: US-RARE DISEASE THERAPEUTICS, INC.-1049303

PATIENT
  Age: 8 Year
  Sex: Male

DRUGS (3)
  1. CYSTADANE [Suspect]
     Active Substance: BETAINE
     Indication: HOMOCYSTINURIA
     Route: 048
     Dates: start: 20140712
  2. PYRIDOXINE [Concomitant]
     Active Substance: PYRIDOXINE
  3. VITAMIN C [Concomitant]
     Active Substance: ASCORBIC ACID

REACTIONS (2)
  - Gastrointestinal infection [Recovered/Resolved]
  - Overdose [None]

NARRATIVE: CASE EVENT DATE: 20160218
